FAERS Safety Report 18158996 (Version 2)
Quarter: 2020Q3

REPORT INFORMATION
  Report Type: Report from Study
  Country: CA (occurrence: CA)
  Receive Date: 20200817
  Receipt Date: 20200831
  Transmission Date: 20201103
  Serious: Yes (Other)
  Sender: FDA-Public Use
  Company Number: CA-JNJFOC-20200726241

PATIENT
  Age: 43 Year
  Sex: Female
  Weight: 78 kg

DRUGS (2)
  1. STELARA [Suspect]
     Active Substance: USTEKINUMAB
     Indication: CROHN^S DISEASE
     Route: 058
     Dates: start: 20190213, end: 20200731
  2. STELARA [Suspect]
     Active Substance: USTEKINUMAB

REACTIONS (9)
  - Rectal haemorrhage [Unknown]
  - Peripheral swelling [Recovered/Resolved]
  - Nausea [Unknown]
  - Diarrhoea [Unknown]
  - Therapeutic product effect decreased [Unknown]
  - Gait disturbance [Unknown]
  - Abdominal pain [Unknown]
  - Frequent bowel movements [Unknown]
  - Vomiting [Recovered/Resolved]

NARRATIVE: CASE EVENT DATE: 20200618
